FAERS Safety Report 11861005 (Version 1)
Quarter: 2015Q4

REPORT INFORMATION
  Report Type: Report from Study
  Country: US (occurrence: US)
  Receive Date: 20151222
  Receipt Date: 20151222
  Transmission Date: 20160305
  Serious: Yes (Other)
  Sender: FDA-Public Use
  Company Number: US-EISAI MEDICAL RESEARCH-EC-2015-012394

PATIENT
  Age: 72 Year
  Sex: Male
  Weight: 90.3 kg

DRUGS (16)
  1. TRAMADOL. [Suspect]
     Active Substance: TRAMADOL
     Indication: ROTATOR CUFF SYNDROME
     Route: 048
     Dates: start: 20151102
  2. VITAMIN D3 [Concomitant]
     Active Substance: CHOLECALCIFEROL
     Route: 048
     Dates: start: 20150119
  3. GRAPE SEED EXTRACT [Concomitant]
     Active Substance: GRAPE SEED EXTRACT
     Route: 048
     Dates: start: 20150119
  4. LORCASERIN [Suspect]
     Active Substance: LORCASERIN HYDROCHLORIDE
     Route: 048
     Dates: start: 20150814, end: 20151116
  5. DICLOFENAC [Concomitant]
     Active Substance: DICLOFENAC
     Route: 048
     Dates: start: 20150930
  6. SIMVASTATIN. [Concomitant]
     Active Substance: SIMVASTATIN
     Route: 048
     Dates: start: 20151027
  7. SIMVASTATIN. [Concomitant]
     Active Substance: SIMVASTATIN
     Route: 048
     Dates: start: 20150828, end: 20151026
  8. HYDROXYCHLORAQUINE SULFATE (PLAQUENIL) [Concomitant]
     Route: 048
     Dates: start: 20151001
  9. TYLENOL [Concomitant]
     Active Substance: ACETAMINOPHEN
     Route: 048
     Dates: start: 20150924
  10. SAW PALMETTO [Concomitant]
     Active Substance: SAW PALMETTO
     Route: 048
     Dates: start: 20150119
  11. PRILOSEC [Concomitant]
     Active Substance: OMEPRAZOLE MAGNESIUM
     Route: 048
     Dates: start: 20150702
  12. LORCASERIN [Suspect]
     Active Substance: LORCASERIN HYDROCHLORIDE
     Indication: WEIGHT CONTROL
     Route: 048
     Dates: start: 20150203, end: 20150801
  13. ASPIRIN. [Concomitant]
     Active Substance: ASPIRIN
     Route: 048
     Dates: start: 20150606
  14. MULTIVITAMINS [Concomitant]
     Active Substance: VITAMINS
     Route: 048
     Dates: start: 20150119
  15. SOOLANTRA [Concomitant]
     Active Substance: IVERMECTIN
     Route: 061
     Dates: start: 20150731
  16. HYDROCORTISONE CREAM [Concomitant]
     Active Substance: HYDROCORTISONE
     Route: 061
     Dates: start: 20150119

REACTIONS (1)
  - Serotonin syndrome [Recovered/Resolved]

NARRATIVE: CASE EVENT DATE: 20151116
